FAERS Safety Report 14294002 (Version 1)
Quarter: 2017Q4

REPORT INFORMATION
  Report Type: Report from Study
  Country: US (occurrence: US)
  Receive Date: 20171217
  Receipt Date: 20171217
  Transmission Date: 20180321
  Serious: Yes (Other)
  Sender: FDA-Public Use
  Company Number: US-ROCHE-2037881

PATIENT

DRUGS (3)
  1. TRASTUZUMAB. [Suspect]
     Active Substance: TRASTUZUMAB
     Indication: NON-SMALL CELL LUNG CANCER
     Route: 042
  2. DOCETAXEL. [Suspect]
     Active Substance: DOCETAXEL
     Indication: NON-SMALL CELL LUNG CANCER
     Route: 042
  3. TRASTUZUMAB. [Suspect]
     Active Substance: TRASTUZUMAB
     Route: 042

REACTIONS (5)
  - Fatigue [Unknown]
  - Cough [Unknown]
  - Hyperglycaemia [Unknown]
  - Hypersensitivity [Unknown]
  - Dyspnoea [Unknown]
